FAERS Safety Report 13703094 (Version 1)
Quarter: 2017Q2

REPORT INFORMATION
  Report Type: Spontaneous
  Country: FR (occurrence: FR)
  Receive Date: 20170629
  Receipt Date: 20170629
  Transmission Date: 20170830
  Serious: Yes (Hospitalization)
  Sender: FDA-Public Use
  Company Number: FR-PFIZER INC-2017278354

PATIENT
  Age: 58 Year
  Sex: Male

DRUGS (16)
  1. CALCIDOSE VITAMINE D [Concomitant]
     Active Substance: CALCIUM\CHOLECALCIFEROL
     Dosage: 1 DF, DAILY
  2. ZAMUDOL [Concomitant]
     Active Substance: TRAMADOL HYDROCHLORIDE
     Indication: PAIN
     Dosage: 100 MG, 2X/DAY
  3. FOLIC ACID. [Concomitant]
     Active Substance: FOLIC ACID
     Dosage: 5 MG, 2X/DAY
  4. SPIRIVA [Concomitant]
     Active Substance: TIOTROPIUM BROMIDE MONOHYDRATE
     Dosage: 18 UG, DAILY
  5. SYMBICORT [Concomitant]
     Active Substance: BUDESONIDE\FORMOTEROL FUMARATE DIHYDRATE
     Dosage: 200 UG, 2X/DAY
  6. NOZINAN /00038601/ [Concomitant]
     Active Substance: LEVOMEPROMAZINE
     Dosage: 25 MG, DAILY
  7. PRINCI B [Concomitant]
     Active Substance: PYRIDOXINE\THIAMINE
     Dosage: 1 DF, 3X/DAY
  8. FORTIMEL EXTRA /08293901/ [Concomitant]
     Dosage: 1 DF, 2X/DAY
  9. NICORETTESKIN [Concomitant]
     Dosage: 25 MG, DAILY
  10. XALKORI [Suspect]
     Active Substance: CRIZOTINIB
     Dosage: 250 MG, 2X/DAY
     Route: 048
     Dates: start: 20170123, end: 20170403
  11. VALIUM [Concomitant]
     Active Substance: DIAZEPAM
     Dosage: 10 MG, AS NEEDED (EVENING)
  12. NICORETTESKIN [Concomitant]
     Dosage: 10 MG, DAILY
  13. LANSOPRAZOLE. [Concomitant]
     Active Substance: LANSOPRAZOLE
     Dosage: 1 DF, DAILY
  14. PREGABALIN. [Concomitant]
     Active Substance: PREGABALIN
     Dosage: 25 MG, 2X/DAY
  15. DOLIPRANE [Concomitant]
     Active Substance: ACETAMINOPHEN
     Indication: PAIN
     Dosage: 1 G, 4X/DAY
  16. NICORETTE [Concomitant]
     Active Substance: NICOTINE
     Dosage: 10 MG, 2X/DAY (EVERY 12 HOURS)

REACTIONS (4)
  - Bradycardia [Recovering/Resolving]
  - Fall [Recovering/Resolving]
  - Electrocardiogram QT prolonged [Recovering/Resolving]
  - Coagulation factor decreased [Recovering/Resolving]

NARRATIVE: CASE EVENT DATE: 20170403
